FAERS Safety Report 25347045 (Version 1)
Quarter: 2025Q2

REPORT INFORMATION
  Report Type: Spontaneous
  Country: US (occurrence: US)
  Receive Date: 20250522
  Receipt Date: 20250522
  Transmission Date: 20250717
  Serious: No
  Sender: GALDERMA
  Company Number: US-GALDERMA-US2025003961

PATIENT

DRUGS (4)
  1. PROACTIV MD ADAPALENE ACNE TREATMENT [Suspect]
     Active Substance: ADAPALENE
     Indication: Product used for unknown indication
     Route: 061
     Dates: start: 2024, end: 2024
  2. COSMETICS [Concomitant]
     Active Substance: COSMETICS
     Indication: Product used for unknown indication
     Route: 061
     Dates: start: 2024, end: 2024
  3. COSMETICS [Concomitant]
     Active Substance: COSMETICS
     Indication: Product used for unknown indication
     Route: 061
     Dates: start: 2024, end: 2024
  4. VITAMINS [Concomitant]
     Active Substance: VITAMINS
     Indication: Product used for unknown indication
     Route: 065

REACTIONS (4)
  - Skin burning sensation [Unknown]
  - Acne [Unknown]
  - Skin irritation [Unknown]
  - Dry skin [Unknown]

NARRATIVE: CASE EVENT DATE: 20240101
